FAERS Safety Report 19740079 (Version 2)
Quarter: 2021Q3

REPORT INFORMATION
  Report Type: Other
  Country: KR (occurrence: KR)
  Receive Date: 20210823
  Receipt Date: 20210826
  Transmission Date: 20211014
  Serious: Yes (Hospitalization, Other)
  Sender: FDA-Public Use
  Company Number: KR-ROCHE-2871710

PATIENT
  Age: 73 Year
  Sex: Female

DRUGS (30)
  1. ROSUZET [Concomitant]
     Active Substance: EZETIMIBE\ROSUVASTATIN
     Indication: HYPERLIPIDAEMIA
     Dosage: 10/5 MG
     Route: 048
     Dates: start: 20210716
  2. GLUPA [Concomitant]
     Active Substance: METFORMIN HYDROCHLORIDE
     Route: 048
     Dates: start: 20210716
  3. CEFACLOR. [Concomitant]
     Active Substance: CEFACLOR
     Route: 048
     Dates: start: 20210722
  4. DEXAMETHASONE DISODIUM PHOSPHATE [Concomitant]
     Active Substance: DEXAMETHASONE SODIUM PHOSPHATE
     Route: 042
     Dates: start: 20210628, end: 20210706
  5. NEURONTIN [Concomitant]
     Active Substance: GABAPENTIN
     Route: 048
     Dates: start: 20210604, end: 20210715
  6. STOGAR [Concomitant]
     Active Substance: LAFUTIDINE
     Route: 048
     Dates: start: 20210607, end: 20210609
  7. DEXAMETHASONE. [Concomitant]
     Active Substance: DEXAMETHASONE
     Route: 048
     Dates: start: 20210402, end: 20210625
  8. DUPHALAC EASY [Concomitant]
     Active Substance: LACTULOSE
     Route: 048
     Dates: start: 20210713
  9. STILLEN 2X [Concomitant]
     Route: 048
     Dates: start: 20210722
  10. OROSARTAN [Concomitant]
     Route: 048
     Dates: start: 20210713, end: 20210715
  11. DICAMAX D PLUS [Concomitant]
     Indication: OSTEOPENIA
     Dates: start: 20210723
  12. TRASTUZUMAB EMTANSINE [Suspect]
     Active Substance: ADO-TRASTUZUMAB EMTANSINE
     Indication: BREAST CANCER
     Dosage: SUBSEQUENT THERAPIES ON 23/APR/2021, 14/MAY/2021, 04/JUN/2021, 25/JUN/2021, 23/JUL/2021.
     Route: 042
     Dates: start: 20210402
  13. MEGACE [Concomitant]
     Active Substance: MEGESTROL ACETATE
     Route: 048
     Dates: start: 20210415, end: 20210715
  14. GLUPA [Concomitant]
     Active Substance: METFORMIN HYDROCHLORIDE
     Indication: DIABETES MELLITUS
     Route: 048
     Dates: start: 20210716
  15. AMLODIPINE [Concomitant]
     Active Substance: AMLODIPINE BESYLATE
     Indication: HYPERTENSION
     Dates: start: 20210712, end: 20210715
  16. TAZOPERAN [Concomitant]
     Indication: CELLULITIS
     Route: 042
     Dates: start: 20210628, end: 20210711
  17. MORPHINE SULFATE PENTAHYDRATE [Concomitant]
     Active Substance: MORPHINE SULFATE
     Indication: PAIN
     Route: 042
     Dates: start: 20210701, end: 20210712
  18. MORPHINE SULFATE. [Concomitant]
     Active Substance: MORPHINE SULFATE
     Indication: OSTEOPENIA
     Route: 042
     Dates: start: 20210701, end: 20210714
  19. NEURONTIN [Concomitant]
     Active Substance: GABAPENTIN
     Route: 048
     Dates: start: 20210402, end: 20210603
  20. ROSUZET [Concomitant]
     Active Substance: EZETIMIBE\ROSUVASTATIN
     Indication: HYPERLIPIDAEMIA
     Route: 048
     Dates: start: 20210716
  21. LASIX [Concomitant]
     Active Substance: FUROSEMIDE
     Route: 042
     Dates: start: 20210630, end: 20210630
  22. PARAMACET [Concomitant]
     Active Substance: ACETAMINOPHEN\TRAMADOL
     Route: 048
     Dates: start: 20210402
  23. QUETAPIN [Concomitant]
     Active Substance: QUETIAPINE FUMARATE
     Indication: INSOMNIA
     Route: 048
     Dates: start: 20210707, end: 20210712
  24. OROSARTAN [Concomitant]
     Indication: HYPERTENSION
     Route: 048
     Dates: start: 20210716
  25. LASIX [Concomitant]
     Active Substance: FUROSEMIDE
     Route: 042
     Dates: start: 20210630, end: 20210630
  26. PHENIRAMINE [Concomitant]
     Active Substance: PHENIRAMINE
     Route: 042
     Dates: start: 20210402, end: 20210507
  27. MAGMIL [Concomitant]
     Active Substance: MAGNESIUM HYDROXIDE
     Route: 048
     Dates: start: 20210711, end: 20210713
  28. ANPLAG (SOUTH KOREA) [Concomitant]
     Route: 048
     Dates: start: 20210716
  29. TRIDOL [Concomitant]
     Active Substance: TRAMADOL HYDROCHLORIDE
     Route: 042
     Dates: start: 20210607, end: 20210607
  30. ANPLAG (SOUTH KOREA) [Concomitant]
     Indication: DIABETES MELLITUS
     Route: 048
     Dates: start: 20210716, end: 20210723

REACTIONS (9)
  - Paraesthesia [Recovering/Resolving]
  - Hemiparesis [Recovering/Resolving]
  - Epistaxis [Recovered/Resolved]
  - Constipation [Recovered/Resolved]
  - Pain [Recovering/Resolving]
  - Peripheral swelling [Recovering/Resolving]
  - Pyrexia [Recovering/Resolving]
  - Dyspepsia [Recovering/Resolving]
  - Insomnia [Recovered/Resolved]

NARRATIVE: CASE EVENT DATE: 20210601
